FAERS Safety Report 18440669 (Version 1)
Quarter: 2020Q4

REPORT INFORMATION
  Report Type: Spontaneous
  Country: CA (occurrence: CA)
  Receive Date: 20201029
  Receipt Date: 20201029
  Transmission Date: 20210114
  Serious: Yes (Hospitalization)
  Sender: FDA-Public Use
  Company Number: CA-PFIZER INC-2020416890

PATIENT
  Age: 80 Year
  Sex: Male
  Weight: 75 kg

DRUGS (13)
  1. VITAMIN D [VITAMIN D NOS] [Concomitant]
     Active Substance: VITAMIN D NOS
     Dosage: UNK
  2. LAX-A-DAY [Concomitant]
     Active Substance: POLYETHYLENE GLYCOL 3350
     Dosage: UNK
  3. FRAGMIN [Suspect]
     Active Substance: DALTEPARIN SODIUM
     Indication: THROMBOSIS PROPHYLAXIS
     Dosage: UNK
     Route: 058
  4. DILAUDID [Concomitant]
     Active Substance: HYDROMORPHONE HYDROCHLORIDE
     Dosage: UNK
  5. DUTASTERIDE. [Concomitant]
     Active Substance: DUTASTERIDE
     Dosage: UNK
  6. FLOMAX [Concomitant]
     Active Substance: TAMSULOSIN HYDROCHLORIDE
     Dosage: UNK
  7. ADALAT CC [Concomitant]
     Active Substance: NIFEDIPINE
     Dosage: UNK
  8. CALCIUM [Concomitant]
     Active Substance: CALCIUM
     Dosage: UNK
  9. GRAVOL [Concomitant]
     Active Substance: DIMENHYDRINATE
     Dosage: UNK
  10. HCTZ [Concomitant]
     Active Substance: HYDROCHLOROTHIAZIDE
     Dosage: UNK
  11. THIAMINE. [Concomitant]
     Active Substance: THIAMINE
     Dosage: UNK
  12. TYLENOL [Concomitant]
     Active Substance: ACETAMINOPHEN
     Dosage: UNK
  13. IRBESARTAN. [Concomitant]
     Active Substance: IRBESARTAN
     Dosage: UNK

REACTIONS (3)
  - Ulcer [Recovered/Resolved]
  - Haemorrhage [Recovered/Resolved]
  - Shock haemorrhagic [Recovered/Resolved]
